FAERS Safety Report 5653869-7 (Version None)
Quarter: 2008Q1

REPORT INFORMATION
  Report Type: 
  Country: None (occurrence: None)
  Receive Date: 20080306
  Receipt Date: 20080304
  Transmission Date: 20080703
  Serious: Yes (Other)
  Sender: FDA-Public Use
  Company Number: US-ASTRAZENECA-2008UW01057

PATIENT
  Age: 72 Year
  Sex: Female
  Weight: 122 kg

DRUGS (2)
  1. ARIMIDEX [Suspect]
     Indication: BREAST CANCER
     Route: 048
     Dates: start: 20071001
  2. PREMARIN [Concomitant]
     Dates: start: 19820101

REACTIONS (2)
  - CELLULITIS [None]
  - ERYTHEMA MULTIFORME [None]
